FAERS Safety Report 21655553 (Version 1)
Quarter: 2022Q4

REPORT INFORMATION
  Report Type: Report from Study
  Country: US (occurrence: US)
  Receive Date: 20221129
  Receipt Date: 20221129
  Transmission Date: 20230113
  Serious: Yes (Other)
  Sender: FDA-Public Use
  Company Number: US-ABBVIE-4216194

PATIENT
  Age: 56 Year
  Sex: Female

DRUGS (2)
  1. RINVOQ [Suspect]
     Active Substance: UPADACITINIB
     Indication: Rheumatoid arthritis
     Dosage: FORM STRENGTH: 15MG?RINVOQ ER?LAST ADMIN DATE: 2022
     Route: 048
     Dates: start: 202202
  2. RINVOQ [Suspect]
     Active Substance: UPADACITINIB
     Indication: Rheumatoid arthritis
     Dosage: FORM STRENGTH: 15MG?RINVOQ ER?FIRST ADMIN DATE: 2022
     Route: 048

REACTIONS (2)
  - Knee operation [Unknown]
  - Joint swelling [Unknown]

NARRATIVE: CASE EVENT DATE: 20220901
